FAERS Safety Report 7953320-8 (Version None)
Quarter: 2011Q4

REPORT INFORMATION
  Report Type: 
  Country: None (occurrence: None)
  Receive Date: 20111202
  Receipt Date: 20111121
  Transmission Date: 20120403
  Serious: Yes (Hospitalization, Disabling)
  Sender: FDA-Public Use
  Company Number: CH-BIOGENIDEC-2009BI027877

PATIENT
  Age: 49 Year
  Sex: Female
  Weight: 53 kg

DRUGS (4)
  1. TRAZODONE HCL [Concomitant]
     Indication: DEPRESSION
  2. CITALOPRAM [Concomitant]
  3. TYSABRI [Suspect]
     Indication: RELAPSING-REMITTING MULTIPLE SCLEROSIS
     Route: 042
     Dates: start: 20080129, end: 20090811
  4. BACLOFEN [Concomitant]

REACTIONS (9)
  - IMMUNE RECONSTITUTION SYNDROME [None]
  - RESPIRATORY TRACT INFECTION [None]
  - PROGRESSIVE MULTIFOCAL LEUKOENCEPHALOPATHY [None]
  - EPILEPSY [None]
  - HERPES ZOSTER [None]
  - HEADACHE [None]
  - HEMIPARESIS [None]
  - SINUSITIS [None]
  - MULTIPLE SCLEROSIS [None]
